FAERS Safety Report 17237074 (Version 3)
Quarter: 2020Q2

REPORT INFORMATION
  Report Type: Spontaneous
  Country: US (occurrence: US)
  Receive Date: 20200106
  Receipt Date: 20200401
  Transmission Date: 20200713
  Serious: Yes (Hospitalization)
  Sender: FDA-Public Use
  Company Number: US-PFIZER INC-2020003000

PATIENT
  Age: 48 Year
  Sex: Female
  Weight: 92.97 kg

DRUGS (2)
  1. LYRICA [Suspect]
     Active Substance: PREGABALIN
     Indication: NEURALGIA
     Dosage: UNK UNK, 3X/DAY
     Dates: start: 2004
  2. LYRICA [Suspect]
     Active Substance: PREGABALIN
     Indication: NERVE INJURY

REACTIONS (2)
  - Insomnia [Not Recovered/Not Resolved]
  - Loss of personal independence in daily activities [Unknown]
